FAERS Safety Report 7684963-7 (Version None)
Quarter: 2011Q3

REPORT INFORMATION
  Report Type: 
  Country: None (occurrence: None)
  Receive Date: 20110816
  Receipt Date: 20110103
  Transmission Date: 20111222
  Serious: No
  Sender: FDA-Public Use
  Company Number: US-MYLANLABS-2010S1020491

PATIENT
  Age: 86 Year
  Sex: Female
  Weight: 93.44 kg

DRUGS (17)
  1. SIMVASTATIN [Concomitant]
  2. MELOXICAM [Suspect]
     Indication: MUSCULOSKELETAL PAIN
     Route: 048
     Dates: start: 20100601, end: 20100101
  3. LEVOXYL [Concomitant]
  4. LASIX [Concomitant]
  5. CALCIUM CARBONATE [Concomitant]
  6. CARDIZEM [Concomitant]
  7. MELOXICAM [Suspect]
     Indication: ARTHRITIS
     Route: 048
     Dates: start: 20100601, end: 20100101
  8. POTASSIUM CHLORIDE [Concomitant]
  9. BENTYL [Concomitant]
  10. VICODIN [Concomitant]
  11. MELOXICAM [Suspect]
     Route: 048
     Dates: start: 20100101, end: 20100801
  12. COREG [Concomitant]
  13. OMEPRAZOLE [Concomitant]
  14. MELOXICAM [Suspect]
     Route: 048
     Dates: start: 20100101, end: 20100801
  15. RESTASIS [Concomitant]
  16. WARFARIN SODIUM [Concomitant]
  17. NITROGLYCERIN [Concomitant]

REACTIONS (5)
  - DYSPNOEA [None]
  - FEELING ABNORMAL [None]
  - MICTURITION URGENCY [None]
  - ABDOMINAL DISCOMFORT [None]
  - OEDEMA PERIPHERAL [None]
